FAERS Safety Report 8517041-5 (Version None)
Quarter: 2012Q3

REPORT INFORMATION
  Report Type: 
  Country: None (occurrence: None)
  Receive Date: 20120718
  Receipt Date: 20120711
  Transmission Date: 20120928
  Serious: Yes (Other)
  Sender: FDA-Public Use
  Company Number: JP-SANOFI-AVENTIS-2012SA049833

PATIENT
  Sex: Female
  Weight: 53 kg

DRUGS (29)
  1. INSULIN GLULISINE [Suspect]
     Dosage: 4 UNITS IN MORNING, 10 UNITS IN NOON AND 6 UNITS IN THE EVENING
     Route: 058
     Dates: start: 20100825, end: 20100929
  2. INSULIN GLULISINE [Suspect]
     Dosage: 6 UNITS IN MORNING, 8 UNITS IN NOON AND 6 UNITS IN THE EVENING
     Route: 058
     Dates: start: 20100930, end: 20110406
  3. ROCEPHIN [Concomitant]
     Route: 041
     Dates: start: 20100513, end: 20100520
  4. INSULIN GLULISINE [Suspect]
     Indication: DIABETES MELLITUS
     Dosage: DOSE:4 UNIT(S)
     Route: 058
     Dates: start: 20100518, end: 20100519
  5. INSULIN GLULISINE [Suspect]
     Dosage: 4 UNITS IN MORNING, 6 UNITS IN NOON AND 4 UNITS IN THE EVENING
     Route: 058
     Dates: start: 20100520, end: 20100523
  6. SOLOSTAR [Suspect]
     Dates: start: 20100809, end: 20100824
  7. SOLOSTAR [Suspect]
     Dates: start: 20100825, end: 20100929
  8. SOLOSTAR [Suspect]
     Dates: start: 20110407, end: 20110421
  9. MICARDIS [Concomitant]
     Route: 048
     Dates: start: 20100518
  10. IMIDAPRIL HYDROCHLORIDE [Concomitant]
     Route: 048
  11. LASIX [Concomitant]
     Route: 048
     Dates: start: 20101022
  12. INSULIN GLULISINE [Suspect]
     Dosage: 6 UNITS IN MORNING, 8 UNITS IN NOON AND 6 UNITS IN THE EVENING
     Route: 058
     Dates: start: 20100809, end: 20100824
  13. SOLOSTAR [Suspect]
     Dates: start: 20100524, end: 20100622
  14. SOLOSTAR [Suspect]
     Dates: start: 20100930, end: 20110406
  15. DOXAZOSIN MESYLATE [Concomitant]
     Route: 048
     Dates: start: 20100808
  16. INSULIN GLULISINE [Suspect]
     Dosage: 6 UNITS IN MORNING, 8 UNITS IN NOON AND 4 UNITS IN THE EVENING
     Route: 058
     Dates: start: 20100623, end: 20100808
  17. SOLOSTAR [Suspect]
     Dates: start: 20100520, end: 20100523
  18. CALBLOCK [Concomitant]
     Route: 048
     Dates: start: 20100709
  19. INSULIN GLULISINE [Suspect]
     Dosage: 6 UNITS IN MORNING, 6 UNITS IN NOON AND 4 UNITS IN THE EVENING
     Route: 058
     Dates: start: 20100524, end: 20100622
  20. INSULIN GLULISINE [Suspect]
     Dosage: 6 UNITS IN MORNING, 6 UNITS IN NOON AND 6 UNITS IN THE EVENING
     Route: 058
     Dates: start: 20110422
  21. SOLOSTAR [Suspect]
     Dates: start: 20110422
  22. LANTUS [Concomitant]
     Dosage: DOSE:4 UNIT(S)
     Route: 058
     Dates: start: 20110406
  23. SODIUM POLYSTYRENE SULFONATE [Concomitant]
     Route: 048
     Dates: start: 20100527, end: 20100621
  24. SOLOSTAR [Suspect]
     Indication: DEVICE THERAPY
     Dates: start: 20100518, end: 20100519
  25. SOLOSTAR [Suspect]
     Dates: start: 20100623, end: 20100808
  26. GLIMICRON [Concomitant]
     Indication: DIABETES MELLITUS
     Dosage: STRENGTH: 40MG
     Route: 048
     Dates: end: 20100517
  27. LANTUS [Concomitant]
     Indication: DIABETES MELLITUS
     Dosage: DOSE:6 UNIT(S)
     Route: 058
     Dates: end: 20110405
  28. INSULIN GLULISINE [Suspect]
     Dosage: 3 UNITS IN MORNING, 3 UNITS IN NOON AND 3 UNITS IN THE EVENING
     Route: 058
     Dates: start: 20110407, end: 20110421
  29. GLUCOBAY [Concomitant]
     Indication: DIABETES MELLITUS
     Route: 048
     Dates: end: 20100517

REACTIONS (1)
  - RENAL FAILURE CHRONIC [None]
